FAERS Safety Report 22009817 (Version 2)
Quarter: 2023Q1

REPORT INFORMATION
  Report Type: Report from Study
  Country: US (occurrence: US)
  Receive Date: 20230220
  Receipt Date: 20230327
  Transmission Date: 20230417
  Serious: Yes (Hospitalization, Other)
  Sender: FDA-Public Use
  Company Number: US-BoehringerIngelheim-2023-BI-215270

PATIENT
  Sex: Male

DRUGS (3)
  1. OFEV [Suspect]
     Active Substance: NINTEDANIB
     Indication: Idiopathic pulmonary fibrosis
     Route: 048
     Dates: start: 20200326
  2. OFEV [Suspect]
     Active Substance: NINTEDANIB
     Dosage: ON MONDAY, WEDNESDAY + FRIDAY
     Route: 048
  3. OFEV [Suspect]
     Active Substance: NINTEDANIB
     Dosage: ON SUNDAY, TUESDAY, THURSDAY AND SATURDAY
     Route: 048

REACTIONS (4)
  - Cerebrovascular accident [Unknown]
  - Small intestinal haemorrhage [Not Recovered/Not Resolved]
  - Weight decreased [Unknown]
  - Diarrhoea [Unknown]
